FAERS Safety Report 19458250 (Version 1)
Quarter: 2021Q2

REPORT INFORMATION
  Report Type: Spontaneous
  Country: DE (occurrence: DE)
  Receive Date: 20210624
  Receipt Date: 20210624
  Transmission Date: 20210717
  Serious: Yes (Other)
  Sender: FDA-Public Use
  Company Number: DE-PFIZER INC-2021688579

PATIENT
  Age: 40 Year
  Sex: Female
  Weight: 80 kg

DRUGS (1)
  1. CYTOTEC [Suspect]
     Active Substance: MISOPROSTOL
     Indication: LABOUR INDUCTION
     Dosage: 25 UG EVERY 2 HOURS
     Route: 048
     Dates: start: 20180327, end: 20180328

REACTIONS (5)
  - Off label use [Unknown]
  - Uterine tachysystole [Recovered/Resolved]
  - Postpartum haemorrhage [Recovered/Resolved]
  - Pulmonary embolism [Recovered/Resolved]
  - Shock haemorrhagic [Recovered/Resolved]

NARRATIVE: CASE EVENT DATE: 20180327
